FAERS Safety Report 10258027 (Version 2)
Quarter: 2014Q3

REPORT INFORMATION
  Report Type: Spontaneous
  Country: US (occurrence: US)
  Receive Date: 20140625
  Receipt Date: 20140721
  Transmission Date: 20150326
  Serious: No
  Sender: FDA-Public Use
  Company Number: US-PFIZER INC-2014174162

PATIENT
  Age: 70 Year
  Sex: Female
  Weight: 70.3 kg

DRUGS (10)
  1. VOLTAREN [Suspect]
     Active Substance: DICLOFENAC SODIUM
     Indication: ARTHRITIS
  2. CELEBREX [Suspect]
     Active Substance: CELECOXIB
     Indication: OSTEOARTHRITIS
     Dosage: 200 MG, 1X/DAY
     Route: 048
     Dates: start: 20140610, end: 20140623
  3. ROGAINE HAIR REGROWTH FOR MEN 5% FOAM [Concomitant]
     Indication: ALOPECIA
     Dosage: UNK
  4. VITAMIN D [Concomitant]
     Active Substance: CHOLECALCIFEROL
     Indication: VITAMIN D
     Dosage: 2000 UNITS (500%), UNK
  5. CRESTOR [Concomitant]
     Active Substance: ROSUVASTATIN CALCIUM
     Dosage: 5 MG, UNK
  6. VAGIFEM [Concomitant]
     Active Substance: ESTRADIOL
     Indication: VULVOVAGINAL DRYNESS
     Dosage: UNK A VERY SMALL AMOUNT
  7. TYLENOL [Concomitant]
     Active Substance: ACETAMINOPHEN
     Dosage: 500 MG, 1X/DAY
  8. CALCIUM [Concomitant]
     Active Substance: CALCIUM
     Indication: VITAMIN D
     Dosage: 400 MG, 2X/DAY
  9. CELEBREX [Suspect]
     Active Substance: CELECOXIB
     Indication: ARTHRITIS
  10. VOLTAREN [Suspect]
     Active Substance: DICLOFENAC SODIUM
     Indication: ARTHRALGIA
     Dosage: 75 MG, 2X/DAY
     Route: 048
     Dates: start: 2008, end: 20140609

REACTIONS (9)
  - Photosensitivity reaction [Recovered/Resolved]
  - Gastric disorder [Unknown]
  - Rash [Unknown]
  - Feeling hot [Unknown]
  - Feeling abnormal [Unknown]
  - Pruritus [Unknown]
  - Dermatitis [Recovered/Resolved]
  - Skin disorder [Unknown]
  - Swelling face [Unknown]

NARRATIVE: CASE EVENT DATE: 201405
